FAERS Safety Report 7978808-5 (Version None)
Quarter: 2011Q4

REPORT INFORMATION
  Report Type: 
  Country: None (occurrence: None)
  Receive Date: 20111214
  Receipt Date: 20111209
  Transmission Date: 20120403
  Serious: Yes (Life-Threatening, Hospitalization)
  Sender: FDA-Public Use
  Company Number: US-BRISTOL-MYERS SQUIBB COMPANY-16232308

PATIENT
  Age: 58 Year
  Sex: Female
  Weight: 55 kg

DRUGS (19)
  1. VITAMIN C AND E [Concomitant]
     Indication: NUTRITIONAL SUPPORT
     Route: 065
     Dates: start: 20110216
  2. DOCUSATE SODIUM [Concomitant]
     Dates: start: 20100915
  3. FOLIC ACID [Concomitant]
     Dates: start: 20110216
  4. LACTULOSE [Concomitant]
     Dates: start: 20100617
  5. METHADONE HCL [Concomitant]
     Dates: start: 20101117
  6. NASONEX [Concomitant]
     Dates: start: 20110127
  7. CISPLATIN [Suspect]
     Indication: LUNG NEOPLASM MALIGNANT
     Dosage: DAY1 BEGINING IN CYCLE 1 FOR 28 DAYS CYCLE LAST DOSE ON 10JUN2011
     Route: 042
     Dates: start: 20110406, end: 20110623
  8. COMBIVENT [Concomitant]
     Dates: start: 20091002
  9. FISH OIL [Concomitant]
     Dates: start: 20091002
  10. SENNOSIDE A+B [Concomitant]
     Dates: start: 20100915
  11. TOPAMAX [Concomitant]
  12. FLUOXETINE [Concomitant]
     Dates: start: 20100819
  13. CETIRIZINE HCL [Concomitant]
     Dates: start: 20110127
  14. MEGESTROL ACETATE [Concomitant]
     Dates: start: 20100118
  15. MORPHINE SULFATE [Concomitant]
     Dates: start: 20101117
  16. REGLAN [Concomitant]
     Dates: start: 20091202
  17. TRAZODONE HCL [Concomitant]
     Dates: start: 20091002
  18. METHYLPHENIDATE [Concomitant]
     Dates: start: 20101117
  19. ERGOCALCIFEROL [Concomitant]
     Dates: start: 20091002

REACTIONS (2)
  - CARDIAC ARREST [None]
  - CONVULSION [None]
